FAERS Safety Report 20233094 (Version 3)
Quarter: 2022Q2

REPORT INFORMATION
  Report Type: Report from Study
  Country: IT (occurrence: IT)
  Receive Date: 20211227
  Receipt Date: 20220620
  Transmission Date: 20220720
  Serious: Yes (Hospitalization)
  Sender: FDA-Public Use
  Company Number: IT-KARYOPHARM-2021KPT001611

PATIENT
  Age: 77 Year
  Sex: Female
  Weight: 44 kg

DRUGS (10)
  1. SELINEXOR [Suspect]
     Active Substance: SELINEXOR
     Indication: Diffuse large B-cell lymphoma
     Dosage: 60 MG, DAY 1 AND 8 OF A 21-DAY CYCLE DURING COMBINATION THERAPY
     Route: 048
     Dates: start: 20211115, end: 20211123
  2. RITUXIMAB [Suspect]
     Active Substance: RITUXIMAB
     Indication: Diffuse large B-cell lymphoma
     Dosage: 375 MG/M2, DAY 1 OF A 21-DAY CYCLE
     Route: 042
     Dates: start: 20211115
  3. GEMCITABINE [Suspect]
     Active Substance: GEMCITABINE
     Indication: Diffuse large B-cell lymphoma
     Dosage: 1000 MG/M2, DAY 1 AND 8 OF A 21-DAY CYCLE
     Route: 042
     Dates: start: 20211115
  4. DEXAMETHASONE [Suspect]
     Active Substance: DEXAMETHASONE
     Indication: Diffuse large B-cell lymphoma
     Dosage: 20 MG, DAYS 1, 2, 3, AND 4 OF A 21 DAY CYCLE
     Route: 042
     Dates: start: 20211115
  5. CISPLATIN [Suspect]
     Active Substance: CISPLATIN
     Indication: Diffuse large B-cell lymphoma
     Dosage: 56 MG/M2, DAY 1 OF A 21-DAY CYCLE
     Route: 042
     Dates: start: 20211115
  6. APREPITANT [Concomitant]
     Active Substance: APREPITANT
     Dosage: 125 MG
     Route: 048
     Dates: start: 20211115, end: 20211117
  7. APREPITANT [Concomitant]
     Active Substance: APREPITANT
     Dosage: 80 MG
     Route: 048
     Dates: start: 20211115, end: 20211117
  8. APREPITANT [Concomitant]
     Active Substance: APREPITANT
     Dosage: 80 MG
     Dates: start: 20211115, end: 20211117
  9. OLANZAPINE [Concomitant]
     Active Substance: OLANZAPINE
  10. OXYCODONE [Concomitant]
     Active Substance: OXYCODONE
     Indication: Pain
     Dosage: 5 MG, QD
     Dates: start: 20211122, end: 20211207

REACTIONS (2)
  - Hyponatraemia [Recovered/Resolved]
  - Thrombocytopenia [Not Recovered/Not Resolved]

NARRATIVE: CASE EVENT DATE: 20211123
